FAERS Safety Report 7860507-1 (Version None)
Quarter: 2011Q4

REPORT INFORMATION
  Report Type: 
  Country: None (occurrence: None)
  Receive Date: 20111027
  Receipt Date: 20111021
  Transmission Date: 20120403
  Serious: Yes (Other)
  Sender: FDA-Public Use
  Company Number: US-PFIZER INC-2011255898

PATIENT
  Sex: Female
  Weight: 107 kg

DRUGS (2)
  1. PRISTIQ [Suspect]
     Indication: DEPRESSION
     Dosage: 50 MG, DAILY
     Dates: start: 20080701
  2. PRISTIQ [Suspect]
     Indication: ANXIETY
     Dosage: UNK
     Dates: end: 20110901

REACTIONS (7)
  - HEADACHE [None]
  - HYPERTENSION [None]
  - PALPITATIONS [None]
  - DIZZINESS [None]
  - TINNITUS [None]
  - NAUSEA [None]
  - SKIN REACTION [None]
